FAERS Safety Report 5701250-4 (Version None)
Quarter: 2008Q2

REPORT INFORMATION
  Report Type: 
  Country: None (occurrence: None)
  Receive Date: 20080410
  Receipt Date: 20080314
  Transmission Date: 20081010
  Serious: No
  Sender: FDA-Public Use
  Company Number: US-BOEHRINGER INGELHEIM GMBH, GERMANY-2008-BP-03967BP

PATIENT
  Sex: Male

DRUGS (10)
  1. SPIRIVA [Suspect]
     Indication: EMPHYSEMA
     Route: 055
     Dates: start: 20071101, end: 20080201
  2. SPIRIVA [Suspect]
     Indication: ASTHMA
  3. WARFARIN SODIUM [Concomitant]
  4. LIPITOR [Concomitant]
  5. AMIODARONE HCL [Concomitant]
  6. LEVOTHYROXINE SODIUM [Concomitant]
  7. UROXATRAL [Concomitant]
  8. CARVEDILOL [Concomitant]
  9. LISINOPRIL [Concomitant]
  10. FUROSEMIDE [Concomitant]

REACTIONS (1)
  - CONSTIPATION [None]
